FAERS Safety Report 15863701 (Version 4)
Quarter: 2019Q3

REPORT INFORMATION
  Report Type: Spontaneous
  Country: US (occurrence: US)
  Receive Date: 20190124
  Receipt Date: 20190719
  Transmission Date: 20191004
  Serious: Yes (Other)
  Sender: FDA-Public Use
  Company Number: US-ASTRAZENECA-2019SE13864

PATIENT
  Age: 885 Month
  Sex: Female
  Weight: 63.5 kg

DRUGS (18)
  1. SYMBICORT [Concomitant]
     Active Substance: BUDESONIDE\FORMOTEROL FUMARATE DIHYDRATE
     Dosage: 160 MCG-4.5 MCG/INH
  2. NEURONTIN [Concomitant]
     Active Substance: GABAPENTIN
     Route: 048
  3. SERTRALINE [Concomitant]
     Active Substance: SERTRALINE HYDROCHLORIDE
     Route: 048
  4. TRICOR [Concomitant]
     Active Substance: FENOFIBRATE
     Route: 048
  5. PANTOPRAZOLE [Concomitant]
     Active Substance: PANTOPRAZOLE
     Route: 048
  6. LOPERAMIDE [Concomitant]
     Active Substance: LOPERAMIDE
     Route: 048
  7. PREVACID 24 HR [Suspect]
     Active Substance: LANSOPRAZOLE
     Route: 065
  8. PROTONIX [Suspect]
     Active Substance: PANTOPRAZOLE SODIUM
     Route: 065
     Dates: start: 1990
  9. ZOCOR [Concomitant]
     Active Substance: SIMVASTATIN
     Route: 048
  10. TRICOR [Concomitant]
     Active Substance: FENOFIBRATE
     Route: 048
  11. NEXIUM [Suspect]
     Active Substance: ESOMEPRAZOLE MAGNESIUM
     Route: 048
     Dates: start: 1990
  12. NORCO [Concomitant]
     Active Substance: ACETAMINOPHEN\HYDROCODONE BITARTRATE
     Route: 048
  13. PREVACID [Suspect]
     Active Substance: LANSOPRAZOLE
     Route: 065
  14. ZOLOFT [Concomitant]
     Active Substance: SERTRALINE HYDROCHLORIDE
     Route: 048
  15. NEXIUM [Suspect]
     Active Substance: ESOMEPRAZOLE MAGNESIUM
     Route: 048
     Dates: start: 2015, end: 2017
  16. PRILOSEC [Suspect]
     Active Substance: OMEPRAZOLE MAGNESIUM
     Route: 048
     Dates: start: 1990
  17. XANAX [Concomitant]
     Active Substance: ALPRAZOLAM
     Route: 048
  18. CYCLOBENZAPRINE. [Concomitant]
     Active Substance: CYCLOBENZAPRINE
     Route: 048

REACTIONS (8)
  - Acute kidney injury [Unknown]
  - Rebound acid hypersecretion [Unknown]
  - Tubulointerstitial nephritis [Unknown]
  - End stage renal disease [Unknown]
  - Renal injury [Unknown]
  - Dyspepsia [Unknown]
  - Chronic kidney disease [Unknown]
  - Renal failure [Unknown]

NARRATIVE: CASE EVENT DATE: 201706
